FAERS Safety Report 4424216-3 (Version None)
Quarter: 2004Q3

REPORT INFORMATION
  Report Type: 
  Country: None (occurrence: None)
  Receive Date: 20040809
  Receipt Date: 20040728
  Transmission Date: 20050211
  Serious: Yes (Death)
  Sender: FDA-Public Use
  Company Number: 2004048204

PATIENT
  Age: 3 Month
  Sex: Male

DRUGS (2)
  1. VIAGRA [Suspect]
     Indication: PERSISTENT FOETAL CIRCULATION
     Dosage: 20 MG (1D), ORAL
     Route: 048
  2. BERAPROST SODIUM (BERAPROST SODIUM) [Concomitant]

REACTIONS (3)
  - CARDIAC ARREST [None]
  - CONDITION AGGRAVATED [None]
  - RESPIRATORY FAILURE [None]
